FAERS Safety Report 5941661-5 (Version None)
Quarter: 2008Q4

REPORT INFORMATION
  Report Type: 
  Country: None (occurrence: None)
  Receive Date: 20081021
  Receipt Date: 20081024
  Transmission Date: 20090506
  Serious: Yes (Other)
  Sender: FDA-Public Use
  Company Number: 1000001497

PATIENT
  Age: 24 Year
  Sex: Male
  Weight: 89.8122 kg

DRUGS (3)
  1. LEXAPRO [Suspect]
     Dosage: ORAL
     Route: 048
     Dates: start: 20071201, end: 20080101
  2. LEXAPRO [Suspect]
     Dosage: 20 MG (20 MG), ORAL
     Route: 048
     Dates: start: 20080101
  3. LAMICTAL [Suspect]
     Indication: CONVULSION
     Dosage: 200 MG ( 100 MG, 2 IN I DAY), ORAL
     Route: 048
     Dates: start: 20050101, end: 20080101

REACTIONS (9)
  - ANTICONVULSANT DRUG LEVEL DECREASED [None]
  - CONSTIPATION [None]
  - CONVULSION [None]
  - CONVULSIVE THRESHOLD LOWERED [None]
  - DISORIENTATION [None]
  - LOSS OF CONSCIOUSNESS [None]
  - OVERDOSE [None]
  - PARAESTHESIA [None]
  - SOMNOLENCE [None]
